FAERS Safety Report 21969507 (Version 1)
Quarter: 2023Q1

REPORT INFORMATION
  Report Type: Spontaneous
  Country: FR (occurrence: FR)
  Receive Date: 20230208
  Receipt Date: 20230208
  Transmission Date: 20230417
  Serious: Yes (Other)
  Sender: FDA-Public Use
  Company Number: None

PATIENT
  Age: 70 Year
  Sex: Female

DRUGS (2)
  1. LENVIMA [Suspect]
     Active Substance: LENVATINIB
     Indication: Endometrial cancer metastatic
     Route: 048
     Dates: start: 20220912, end: 20221017
  2. KEYTRUDA [Concomitant]
     Active Substance: PEMBROLIZUMAB
     Indication: Product used for unknown indication
     Dosage: DOSE AND FREQUENCY UNKNOWN

REACTIONS (7)
  - Hypertension [Recovered/Resolved]
  - Abnormal loss of weight [Recovering/Resolving]
  - Abdominal pain [Recovering/Resolving]
  - Decreased appetite [Recovering/Resolving]
  - Myalgia [Recovering/Resolving]
  - Asthenia [Recovering/Resolving]
  - Proteinuria [Recovered/Resolved]

NARRATIVE: CASE EVENT DATE: 20220901
